FAERS Safety Report 16081494 (Version 12)
Quarter: 2021Q1

REPORT INFORMATION
  Report Type: Spontaneous
  Country: CA (occurrence: CA)
  Receive Date: 20190316
  Receipt Date: 20210107
  Transmission Date: 20210419
  Serious: Yes (Other)
  Sender: FDA-Public Use
  Company Number: CA-CELLTRION INC.-2019CA017978

PATIENT

DRUGS (24)
  1. INFLECTRA [Suspect]
     Active Substance: INFLIXIMAB-DYYB
     Dosage: 5 MG/KG WEEK 2, 6, THEN EVERY 8 WEEKS
     Route: 042
     Dates: start: 20200131
  2. INFLECTRA [Suspect]
     Active Substance: INFLIXIMAB-DYYB
     Dosage: 5 MG/KG WEEK Q (EVERY), 2, 6, THEN EVERY 8 WEEKS
     Route: 042
     Dates: start: 20200327
  3. INFLECTRA [Suspect]
     Active Substance: INFLIXIMAB-DYYB
     Dosage: 5 MG/KG WEEK Q (EVERY), 2, 6, THEN EVERY 8 WEEKS
     Route: 042
     Dates: start: 20200522
  4. TEVA?LOPERAMIDE [Concomitant]
     Dosage: UNK
     Route: 065
  5. PANTOPRAZOLE SODIUM. [Concomitant]
     Active Substance: PANTOPRAZOLE SODIUM
     Dosage: UNK
     Route: 065
  6. INFLECTRA [Suspect]
     Active Substance: INFLIXIMAB-DYYB
     Dosage: 227 MG, UNK
     Route: 042
     Dates: start: 20190104, end: 20190104
  7. INFLECTRA [Suspect]
     Active Substance: INFLIXIMAB-DYYB
     Dosage: 5 MG/KG WEEK 2, 6, THEN EVERY 8 WEEKS
     Route: 042
     Dates: start: 20190301, end: 20190301
  8. INFLECTRA [Suspect]
     Active Substance: INFLIXIMAB-DYYB
     Dosage: 5 MG/KG WEEK 2, 6, THEN EVERY 8 WEEKS
     Route: 042
     Dates: start: 20191011
  9. JAMP?ASA EC [Concomitant]
     Dosage: 80 MG, 1X/DAY
     Route: 048
  10. TEVA?RAMIPRIL [Concomitant]
     Active Substance: RAMIPRIL
     Dosage: UNK
     Route: 065
  11. TEVA?ROSUVASTATIN [Concomitant]
     Active Substance: ROSUVASTATIN
     Dosage: UNK
     Route: 065
  12. INFLECTRA [Suspect]
     Active Substance: INFLIXIMAB-DYYB
     Dosage: 5 MG/KG WEEK 2, 6, THEN EVERY 8 WEEKS
     Route: 042
     Dates: start: 20181128
  13. INFLECTRA [Suspect]
     Active Substance: INFLIXIMAB-DYYB
     Dosage: 5 MG/KG WEEK 2, 6, THEN EVERY 8 WEEKS
     Route: 042
     Dates: start: 20190816, end: 20190816
  14. INFLECTRA [Suspect]
     Active Substance: INFLIXIMAB-DYYB
     Indication: CROHN^S DISEASE
     Dosage: 5 MG/KG WEEK 2, 6, THEN EVERY 8 WEEKS
     Route: 042
     Dates: start: 20181115, end: 20181115
  15. INFLECTRA [Suspect]
     Active Substance: INFLIXIMAB-DYYB
     Dosage: 5 MG/KG WEEK Q (EVERY), 2, 6, THEN EVERY 8 WEEKS
     Route: 042
     Dates: start: 20200714
  16. INFLECTRA [Suspect]
     Active Substance: INFLIXIMAB-DYYB
     Dosage: 5 MG/KG WEEK Q (EVERY), 2, 6, THEN EVERY 8 WEEKS
     Route: 042
     Dates: start: 20201229
  17. INFLECTRA [Suspect]
     Active Substance: INFLIXIMAB-DYYB
     Dosage: 5 MG/KG WEEK Q (EVERY), 2, 6, THEN EVERY 8 WEEKS
     Route: 042
     Dates: start: 20201229
  18. NASONEX [Concomitant]
     Active Substance: MOMETASONE FUROATE
     Dosage: UNK
     Route: 065
  19. INFLECTRA [Suspect]
     Active Substance: INFLIXIMAB-DYYB
     Dosage: 5 MG/KG WEEK Q (EVERY), 2, 6, THEN EVERY 8 WEEKS
     Route: 042
     Dates: start: 20201229
  20. SANDOSTATIN [Concomitant]
     Active Substance: OCTREOTIDE ACETATE
     Dosage: UNK UNK, MONTHLY (MONTHLY FOR 4 MONTHS)
     Route: 058
     Dates: start: 20181121
  21. INFLECTRA [Suspect]
     Active Substance: INFLIXIMAB-DYYB
     Dosage: 5 MG/KG WEEK 2, 6, THEN EVERY 8 WEEKS
     Route: 042
     Dates: start: 20191206
  22. INFLECTRA [Suspect]
     Active Substance: INFLIXIMAB-DYYB
     Dosage: 5 MG/KG WEEK Q (EVERY), 2, 6, THEN EVERY 8 WEEKS
     Route: 042
     Dates: start: 20200908
  23. ATENOLOL. [Concomitant]
     Active Substance: ATENOLOL
     Dosage: UNK
     Route: 065
  24. FERROUS SULFATE. [Concomitant]
     Active Substance: FERROUS SULFATE
     Dosage: UNK
     Route: 065

REACTIONS (14)
  - Blood pressure fluctuation [Not Recovered/Not Resolved]
  - Nervousness [Unknown]
  - Condition aggravated [Recovered/Resolved]
  - Heart rate decreased [Unknown]
  - Hypertension [Unknown]
  - Incorrect dose administered [Unknown]
  - Abnormal faeces [Unknown]
  - Pain in extremity [Unknown]
  - Fatigue [Unknown]
  - Nephrolithiasis [Recovered/Resolved]
  - Intentional product use issue [Unknown]
  - Inappropriate schedule of product administration [Unknown]
  - Diarrhoea [Unknown]
  - Off label use [Unknown]

NARRATIVE: CASE EVENT DATE: 20190104
